FAERS Safety Report 8814339 (Version 2)
Quarter: 2012Q4

REPORT INFORMATION
  Report Type: Spontaneous
  Country: ES (occurrence: None)
  Receive Date: 20120925
  Receipt Date: 20121011
  Transmission Date: 20130627
  Serious: Yes (Life-Threatening)
  Sender: FDA-Public Use
  Company Number: UTC-023262

PATIENT
  Age: 60 Year
  Sex: Female

DRUGS (4)
  1. REMODULIN [Suspect]
     Indication: PULMONARY HYPERTENSION
     Dosage: 36 ug/kg (0.025 ug/kg, 1 in 1 min), Intravenous drip
     Dates: start: 20120728, end: 20120806
  2. BOSENTAN [Concomitant]
  3. SINTROM (ACENOCOUMAROL) [Concomitant]
  4. COZAAR (LOSARTAN POTASSIUM) [Concomitant]

REACTIONS (1)
  - Enterobacter sepsis [None]
